FAERS Safety Report 17485721 (Version 1)
Quarter: 2020Q1

REPORT INFORMATION
  Report Type: Spontaneous
  Country: US (occurrence: US)
  Receive Date: 20200302
  Receipt Date: 20200302
  Transmission Date: 20200409
  Serious: Yes (Other)
  Sender: FDA-Public Use
  Company Number: NVSC2020US055817

PATIENT
  Age: 46 Year
  Sex: Female

DRUGS (2)
  1. VIVELLE-DOT [Suspect]
     Active Substance: ESTRADIOL
     Indication: PRODUCT USED FOR UNKNOWN INDICATION
     Dosage: 0.05 MG
     Route: 065
  2. VIVELLE-DOT [Suspect]
     Active Substance: ESTRADIOL
     Dosage: 0.075 MG
     Route: 065

REACTIONS (5)
  - Vaginal haemorrhage [Unknown]
  - Metrorrhagia [Unknown]
  - Premature menopause [Unknown]
  - Breast tenderness [Unknown]
  - Rash [Unknown]

NARRATIVE: CASE EVENT DATE: 201908
